FAERS Safety Report 5293176-8 (Version None)
Quarter: 2007Q2

REPORT INFORMATION
  Report Type: 
  Country: None (occurrence: None)
  Receive Date: 20070411
  Receipt Date: 20070328
  Transmission Date: 20071010
  Serious: Yes (Disabling)
  Sender: FDA-Public Use
  Company Number: TW-JNJFOC-20070401061

PATIENT
  Sex: Female

DRUGS (3)
  1. IMODIUM [Suspect]
     Indication: DIARRHOEA
     Route: 065
  2. IMODIUM [Suspect]
     Route: 065
  3. BUTYLSCOPOLAMINE [Suspect]
     Indication: GASTROINTESTINAL PAIN

REACTIONS (1)
  - FLUSHING [None]
